FAERS Safety Report 6242422-2 (Version None)
Quarter: 2009Q2

REPORT INFORMATION
  Report Type: 
  Country: None (occurrence: None)
  Receive Date: 20090622
  Receipt Date: 20090622
  Transmission Date: 20091009
  Serious: Yes (Hospitalization)
  Sender: FDA-Public Use
  Company Number: None

PATIENT
  Sex: Female
  Weight: 49.1 kg

DRUGS (2)
  1. SORAFENIB 200 MG BAYER [Suspect]
     Indication: BREAST CANCER METASTATIC
     Dosage: SORAFENIB 200 MG TWICE DAILY PO
     Route: 048
     Dates: start: 20090605, end: 20090612
  2. VINORELBINE [Suspect]
     Dosage: VINORELBINE WEEKLY X 3 IV BOLUS
     Route: 040

REACTIONS (4)
  - CELLULITIS [None]
  - INJECTION SITE PAIN [None]
  - INJECTION SITE REACTION [None]
  - PHLEBITIS [None]
